FAERS Safety Report 7279026-9 (Version None)
Quarter: 2010Q4

REPORT INFORMATION
  Report Type: 
  Country: None (occurrence: None)
  Receive Date: 20101206
  Receipt Date: 20100910
  Transmission Date: 20110411
  Serious: Yes (Other)
  Sender: FDA-Public Use
  Company Number: 2010SP048804

PATIENT
  Age: 40 Year
  Sex: Male

DRUGS (5)
  1. SAPHRIS [Suspect]
     Indication: BIPOLAR DISORDER
     Dosage: 10 MG;HS;PO
     Route: 048
     Dates: start: 20100801
  2. CALCIUM [Concomitant]
  3. M.V.I. [Concomitant]
  4. OXYBUTIN HYDROCHLORIDE [Concomitant]
  5. SENOKOT [Concomitant]

REACTIONS (3)
  - HYPERTENSION [None]
  - INAPPROPRIATE SCHEDULE OF DRUG ADMINISTRATION [None]
  - INCORRECT ROUTE OF DRUG ADMINISTRATION [None]
